FAERS Safety Report 5053852-9 (Version None)
Quarter: 2006Q3

REPORT INFORMATION
  Report Type: 
  Country: None (occurrence: None)
  Receive Date: 20060718
  Receipt Date: 20060713
  Transmission Date: 20061208
  Serious: Yes (Hospitalization)
  Sender: FDA-Public Use
  Company Number: 454524

PATIENT
  Age: 82 Year
  Sex: Female

DRUGS (7)
  1. CARVEDILOL [Suspect]
     Dosage: 1.25MG TWICE PER DAY
     Route: 048
     Dates: start: 20040127
  2. NORVASC [Concomitant]
  3. TEMOCAPRIL HYDROCHLORIDE [Concomitant]
  4. GASTER D [Concomitant]
  5. WARFARIN SODIUM [Concomitant]
  6. ACARDI [Concomitant]
  7. LASIX [Concomitant]

REACTIONS (1)
  - CARDIAC FAILURE [None]
